FAERS Safety Report 4469876-6 (Version None)
Quarter: 2004Q4

REPORT INFORMATION
  Report Type: 
  Country: None (occurrence: None)
  Receive Date: 20041005
  Receipt Date: 20040928
  Transmission Date: 20050328
  Serious: Yes (Other)
  Sender: FDA-Public Use
  Company Number: 2004235648US

PATIENT
  Sex: Female

DRUGS (3)
  1. PROVERA [Suspect]
     Dates: start: 19890301, end: 19970701
  2. PREMARIN [Suspect]
     Dates: start: 19890301, end: 20020801
  3. PREMPRO [Suspect]
     Dates: start: 19960801, end: 19970901

REACTIONS (1)
  - OVARIAN CANCER [None]
